FAERS Safety Report 13902000 (Version 1)
Quarter: 2017Q3

REPORT INFORMATION
  Report Type: Spontaneous
  Country: US (occurrence: US)
  Receive Date: 20170824
  Receipt Date: 20170824
  Transmission Date: 20171127
  Serious: Yes (Hospitalization)
  Sender: FDA-Public Use
  Company Number: US-ROCHE-1130064

PATIENT
  Age: 69 Year
  Sex: Female

DRUGS (7)
  1. HERCEPTIN [Suspect]
     Active Substance: TRASTUZUMAB
     Indication: OVARIAN CANCER
     Route: 065
     Dates: start: 19990928, end: 19991207
  2. DECADRON [Concomitant]
     Active Substance: DEXAMETHASONE
  3. TAXOTERE [Concomitant]
     Active Substance: DOCETAXEL
  4. BENADRYL [Concomitant]
     Active Substance: DIPHENHYDRAMINE HYDROCHLORIDE
  5. TRENTAL [Concomitant]
     Active Substance: PENTOXIFYLLINE
  6. ZOFRAN [Concomitant]
     Active Substance: ONDANSETRON HYDROCHLORIDE
  7. TAGAMET [Concomitant]
     Active Substance: CIMETIDINE

REACTIONS (1)
  - Dyspnoea [Unknown]

NARRATIVE: CASE EVENT DATE: 20000229
